FAERS Safety Report 4528565-X (Version None)
Quarter: 2005Q1

REPORT INFORMATION
  Report Type: 
  Country: None (occurrence: None)
  Receive Date: 20041216
  Receipt Date: 20041004
  Transmission Date: 20050727
  Serious: Yes (Hospitalization)
  Sender: FDA-Public Use
  Company Number: PHBS2004JP13331

PATIENT
  Age: 24 Year
  Sex: Male
  Weight: 48 kg

DRUGS (10)
  1. FLOMOX [Suspect]
     Indication: PROPHYLAXIS
     Dosage: 200 MG, BID
     Route: 048
     Dates: start: 20040906, end: 20040909
  2. NIFLAN [Concomitant]
     Indication: PROPHYLAXIS
     Dosage: 75 MG, BID
     Route: 048
     Dates: start: 20040906, end: 20040909
  3. EXCELASE [Suspect]
     Indication: PROPHYLAXIS
     Dosage: 1 DF, BID
     Route: 048
     Dates: start: 20040906, end: 20040909
  4. PONTAL [Suspect]
     Indication: PROPHYLAXIS
     Dosage: 500 MG, BID
     Route: 048
     Dates: start: 20040910, end: 20040911
  5. VOLTAREN [Suspect]
     Indication: PROPHYLAXIS
     Dosage: 50 MG, BID
     Route: 048
     Dates: start: 20040906, end: 20040909
  6. PREDONINE [Concomitant]
     Indication: CROHN'S DISEASE
     Dosage: 5 MG/DAY
     Route: 048
     Dates: start: 20020107
  7. MESALAMINE [Concomitant]
     Indication: CROHN'S DISEASE
     Dosage: 3000 MG/DAY
     Route: 048
     Dates: start: 20040414
  8. MUCOSTA [Concomitant]
     Indication: CROHN'S DISEASE
     Dosage: 300 MG/DAY
     Route: 048
     Dates: start: 20010822
  9. ONE-ALPHA [Concomitant]
     Indication: CROHN'S DISEASE
     Dosage: 0.5 UG/DAY
     Route: 048
     Dates: start: 20040517
  10. PARIET [Concomitant]
     Indication: CROHN'S DISEASE
     Dosage: 20 MG/DAY
     Route: 048
     Dates: start: 20040714

REACTIONS (6)
  - COLITIS [None]
  - COLITIS ULCERATIVE [None]
  - HAEMOGLOBIN DECREASED [None]
  - INFLAMMATION [None]
  - LOSS OF CONSCIOUSNESS [None]
  - RECTAL HAEMORRHAGE [None]
